FAERS Safety Report 25869069 (Version 1)
Quarter: 2025Q4

REPORT INFORMATION
  Report Type: Spontaneous
  Country: None (occurrence: US)
  Receive Date: 20251001
  Receipt Date: 20251001
  Transmission Date: 20260117
  Serious: No
  Sender: MERCK SHARP & DOHME LLC
  Company Number: US-009507513-2332249

PATIENT
  Age: 41 Year
  Sex: Female

DRUGS (6)
  1. WINREVAIR [Suspect]
     Active Substance: SOTATERCEPT-CSRK
     Dosage: 0.7 MG/KG
  2. WINREVAIR [Suspect]
     Active Substance: SOTATERCEPT-CSRK
  3. WINREVAIR [Suspect]
     Active Substance: SOTATERCEPT-CSRK
  4. WINREVAIR [Suspect]
     Active Substance: SOTATERCEPT-CSRK
  5. EPOPROSTENOL [Concomitant]
     Active Substance: EPOPROSTENOL
     Route: 042
  6. TREPROSTINIL [Concomitant]
     Active Substance: TREPROSTINIL
     Route: 042

REACTIONS (2)
  - Drug eruption [Recovered/Resolved]
  - Drug eruption [Recovered/Resolved]
